FAERS Safety Report 13411650 (Version 3)
Quarter: 2019Q4

REPORT INFORMATION
  Report Type: Spontaneous
  Country: US (occurrence: US)
  Receive Date: 20170406
  Receipt Date: 20191115
  Transmission Date: 20200122
  Serious: No
  Sender: FDA-Public Use
  Company Number: US-JNJFOC-20170303074

PATIENT
  Sex: Male

DRUGS (9)
  1. RISPERDAL [Suspect]
     Active Substance: RISPERIDONE
     Indication: ANXIETY
     Route: 048
     Dates: start: 20100804, end: 20100913
  2. RISPERIDONE. [Suspect]
     Active Substance: RISPERIDONE
     Indication: ANXIETY
     Route: 048
     Dates: start: 20010731
  3. RISPERIDONE. [Suspect]
     Active Substance: RISPERIDONE
     Indication: POST-TRAUMATIC STRESS DISORDER
     Route: 048
     Dates: start: 20010608, end: 20120913
  4. RISPERIDONE. [Suspect]
     Active Substance: RISPERIDONE
     Indication: BIPOLAR DISORDER
     Dosage: AT BEDTIME AND TWICE DAILY
     Route: 048
     Dates: start: 20010417, end: 20020220
  5. RISPERDAL [Suspect]
     Active Substance: RISPERIDONE
     Indication: BIPOLAR DISORDER
     Route: 048
     Dates: start: 20010417
  6. RISPERDAL [Suspect]
     Active Substance: RISPERIDONE
     Indication: POST-TRAUMATIC STRESS DISORDER
     Route: 048
     Dates: start: 20030926, end: 20040202
  7. RISPERDAL [Suspect]
     Active Substance: RISPERIDONE
     Indication: DEPRESSION
  8. RISPERIDONE. [Suspect]
     Active Substance: RISPERIDONE
     Indication: DEPRESSION
     Route: 048
     Dates: start: 20020418, end: 20030422
  9. RISPERIDONE. [Suspect]
     Active Substance: RISPERIDONE
     Indication: PRODUCT USED FOR UNKNOWN INDICATION
     Route: 048

REACTIONS (3)
  - Gynaecomastia [Unknown]
  - Emotional distress [Unknown]
  - Obesity [Unknown]

NARRATIVE: CASE EVENT DATE: 2004
